FAERS Safety Report 7280202-X (Version None)
Quarter: 2011Q1

REPORT INFORMATION
  Report Type: 
  Country: None (occurrence: None)
  Receive Date: 20110208
  Receipt Date: 20110201
  Transmission Date: 20110831
  Serious: Yes (Hospitalization)
  Sender: FDA-Public Use
  Company Number: FR-JNJFOC-20110201635

PATIENT
  Sex: Male

DRUGS (6)
  1. CYMBALTA [Suspect]
     Indication: DEPRESSION
     Route: 048
  2. RISPERDAL [Suspect]
     Indication: SCHIZOPHRENIA
     Route: 048
  3. NOZINAN [Suspect]
     Indication: SCHIZOPHRENIA
     Route: 048
  4. ABILIFY [Suspect]
     Indication: SCHIZOPHRENIA
     Route: 048
  5. ANAFRANIL [Suspect]
     Indication: DEPRESSION
     Route: 048
  6. VALPROATE SODIUM [Suspect]
     Indication: SCHIZOPHRENIA
     Route: 048

REACTIONS (1)
  - AGGRESSION [None]
